FAERS Safety Report 4301277-3 (Version None)
Quarter: 2004Q1

REPORT INFORMATION
  Report Type: 
  Country: None (occurrence: None)
  Receive Date: 20040219
  Receipt Date: 20040206
  Transmission Date: 20041129
  Serious: Yes (Death)
  Sender: FDA-Public Use
  Company Number: GB-JNJFOC-20040201558

PATIENT
  Age: 72 Year
  Sex: Female

DRUGS (5)
  1. REMICADE [Suspect]
     Indication: RHEUMATOID ARTHRITIS
     Dosage: INTRAVENOUS
     Route: 042
     Dates: start: 20020722, end: 20021201
  2. CYCLOPHOSPHAMIDE [Concomitant]
  3. FOLIC ACID [Concomitant]
  4. PREDNISOLONE [Concomitant]
  5. CALCICHEW (CALCIUM CARBONATE) [Concomitant]

REACTIONS (1)
  - DEATH [None]
